FAERS Safety Report 21614106 (Version 3)
Quarter: 2023Q1

REPORT INFORMATION
  Report Type: Spontaneous
  Country: JP (occurrence: JP)
  Receive Date: 20221118
  Receipt Date: 20230124
  Transmission Date: 20230418
  Serious: Yes (Hospitalization, Other)
  Sender: FDA-Public Use
  Company Number: JP-MYLANLABS-2022M1124453

PATIENT
  Age: 65 Year
  Sex: Female

DRUGS (3)
  1. AMLODIPINE BESYLATE [Suspect]
     Active Substance: AMLODIPINE BESYLATE
     Indication: Suicide attempt
     Dosage: 360 MILLIGRAM
     Route: 048
  2. IRBESARTAN [Suspect]
     Active Substance: IRBESARTAN
     Indication: Suicide attempt
     Dosage: 3100 MILLIGRAM
     Route: 048
  3. POTASSIUM ASPARTATE [Suspect]
     Active Substance: POTASSIUM ASPARTATE
     Indication: Suicide attempt
     Dosage: 45.6 GRAM
     Route: 048

REACTIONS (5)
  - Suicide attempt [Unknown]
  - Altered state of consciousness [Unknown]
  - Hypotension [Recovering/Resolving]
  - Vascular resistance systemic decreased [Unknown]
  - Intentional overdose [Unknown]
